FAERS Safety Report 20110409 (Version 1)
Quarter: 2021Q4

REPORT INFORMATION
  Report Type: Spontaneous
  Country: US (occurrence: US)
  Receive Date: 20211124
  Receipt Date: 20211124
  Transmission Date: 20220303
  Serious: Yes (Other)
  Sender: FDA-Public Use
  Company Number: US-NOVOPROD-782438

PATIENT
  Age: 62 Year
  Sex: Female

DRUGS (4)
  1. NOVOLOG [Suspect]
     Active Substance: INSULIN ASPART
     Dosage: UNK
     Route: 058
  2. NOVOLOG [Suspect]
     Active Substance: INSULIN ASPART
     Indication: Type 1 diabetes mellitus
     Dosage: UNK
     Route: 058
     Dates: start: 20100101
  3. NOVOLOG [Suspect]
     Active Substance: INSULIN ASPART
     Dosage: DOSE INCREASED
     Route: 058
     Dates: start: 20100101
  4. NOVOLOG [Suspect]
     Active Substance: INSULIN ASPART
     Dosage: UNK
     Route: 058

REACTIONS (8)
  - Blood glucose decreased [Recovered/Resolved]
  - Hot flush [Unknown]
  - Poor peripheral circulation [Unknown]
  - Hypoglycaemia unawareness [Unknown]
  - Blood glucose increased [Unknown]
  - Blood glucose fluctuation [Not Recovered/Not Resolved]
  - Liquid product physical issue [Unknown]
  - Infusion site scar [Unknown]

NARRATIVE: CASE EVENT DATE: 20201201
